FAERS Safety Report 10264419 (Version 1)
Quarter: 2014Q2

REPORT INFORMATION
  Report Type: Spontaneous
  Country: CA (occurrence: CA)
  Receive Date: 20140627
  Receipt Date: 20140627
  Transmission Date: 20141212
  Serious: Yes (Hospitalization, Other)
  Sender: FDA-Public Use
  Company Number: CA-ELI_LILLY_AND_COMPANY-CA201406006335

PATIENT
  Age: 71 Year
  Sex: Male

DRUGS (16)
  1. ADCIRCA [Suspect]
     Indication: PULMONARY HYPERTENSION
     Dosage: 40 MG, QD
     Route: 065
     Dates: start: 20140402
  2. BISACODILO [Concomitant]
  3. VENTOLIN                           /00139501/ [Concomitant]
  4. WARFARIN [Concomitant]
  5. COLACE [Concomitant]
  6. INSULIN [Concomitant]
  7. THYROXIN [Concomitant]
  8. PANTOLOC                           /01263204/ [Concomitant]
  9. FUROSEMIDE [Concomitant]
  10. LACTULOSE [Concomitant]
  11. TRAMADOL [Concomitant]
  12. SPIRIVA [Concomitant]
  13. NITRO                              /00003201/ [Concomitant]
  14. SENOKOT                            /00142201/ [Concomitant]
  15. SPIRONOLACTONE [Concomitant]
  16. METOPROLOL [Concomitant]

REACTIONS (2)
  - Pneumonia [Recovering/Resolving]
  - Dyspnoea [Not Recovered/Not Resolved]
